FAERS Safety Report 20071885 (Version 2)
Quarter: 2021Q4

REPORT INFORMATION
  Report Type: Spontaneous
  Country: MT (occurrence: MT)
  Receive Date: 20211116
  Receipt Date: 20211129
  Transmission Date: 20220304
  Serious: Yes (Death)
  Sender: FDA-Public Use
  Company Number: MT-002147023-NVSC2021MT257677

PATIENT

DRUGS (1)
  1. RUXOLITINIB [Suspect]
     Active Substance: RUXOLITINIB
     Indication: Chronic myelomonocytic leukaemia
     Dosage: 10 MG
     Route: 065
     Dates: start: 201904

REACTIONS (1)
  - Death [Fatal]
